FAERS Safety Report 5153245-X (Version None)
Quarter: 2006Q4

REPORT INFORMATION
  Report Type: 
  Country: None (occurrence: None)
  Receive Date: 20061117
  Receipt Date: 20061106
  Transmission Date: 20070319
  Serious: Yes (Other)
  Sender: FDA-Public Use
  Company Number: PHBS2006MX17337

PATIENT
  Age: 4 Year
  Sex: Male

DRUGS (2)
  1. TEGRETOL [Suspect]
     Indication: EPILEPSY
     Dosage: 5 ML/DAY
     Route: 048
     Dates: start: 20060804
  2. TEGRETOL [Suspect]
     Dosage: 7.5 ML/DAY
     Route: 048
     Dates: start: 20061013

REACTIONS (9)
  - BODY TEMPERATURE DECREASED [None]
  - CONVULSION [None]
  - COUGH [None]
  - HYPERHIDROSIS [None]
  - OCULAR ICTERUS [None]
  - OEDEMA PERIPHERAL [None]
  - PERIPHERAL COLDNESS [None]
  - PHARYNGOTONSILLITIS [None]
  - STOMATITIS [None]
